FAERS Safety Report 15397253 (Version 2)
Quarter: 2019Q1

REPORT INFORMATION
  Report Type: Report from Study
  Country: US (occurrence: US)
  Receive Date: 20180918
  Receipt Date: 20190228
  Transmission Date: 20190417
  Serious: Yes (Other)
  Sender: FDA-Public Use
  Company Number: US-ALEXION PHARMACEUTICALS INC-A201812241

PATIENT
  Sex: Male

DRUGS (1)
  1. KANUMA [Suspect]
     Active Substance: SEBELIPASE ALFA
     Indication: LYSOSOMAL ACID LIPASE DEFICIENCY
     Dosage: UNK
     Route: 065

REACTIONS (1)
  - Anaphylactic reaction [Unknown]
